FAERS Safety Report 5382418-6 (Version None)
Quarter: 2007Q3

REPORT INFORMATION
  Report Type: 
  Country: None (occurrence: None)
  Receive Date: 20070709
  Receipt Date: 20070702
  Transmission Date: 20080115
  Serious: Yes (Life-Threatening)
  Sender: FDA-Public Use
  Company Number: FR-GENENTECH-243945

PATIENT
  Age: 70 Year
  Sex: Male

DRUGS (8)
  1. MABTHERA [Suspect]
     Indication: NON-HODGKIN'S LYMPHOMA
     Dosage: 600 MG, UNK
     Route: 042
     Dates: start: 20060705, end: 20070125
  2. PEG-INTRON [Suspect]
     Indication: NON-HODGKIN'S LYMPHOMA
     Dosage: 35 A?G, 1/WEEK
     Route: 058
     Dates: start: 20020607, end: 20031030
  3. DOXORUBICIN HCL [Suspect]
     Indication: NON-HODGKIN'S LYMPHOMA
     Dosage: 25 MG/M2, UNK
     Route: 042
     Dates: start: 20020607, end: 20031030
  4. FLUDARA [Suspect]
     Indication: NON-HODGKIN'S LYMPHOMA
     Dosage: 60 MG, UNK
     Route: 048
     Dates: start: 20060705, end: 20070128
  5. ETOPOSIDE [Suspect]
     Indication: NON-HODGKIN'S LYMPHOMA
     Dosage: 100 MG/M2, UNK
     Route: 042
     Dates: start: 20020607, end: 20031030
  6. CYCLOPHOSPHAMIDE [Suspect]
     Indication: NON-HODGKIN'S LYMPHOMA
     Dosage: 600 MG/M2, UNK
     Route: 042
     Dates: start: 20020607, end: 20031030
  7. PREDNISOLONE [Concomitant]
     Indication: DRUG USE FOR UNKNOWN INDICATION
     Dosage: 40 MG/M2, 1/MONTH
     Dates: start: 20020607, end: 20031030
  8. NOVANTRONE [Concomitant]
     Indication: DRUG USE FOR UNKNOWN INDICATION
     Dosage: 15 MG, UNK
     Dates: start: 20060705

REACTIONS (1)
  - BLADDER CANCER [None]
